FAERS Safety Report 4467294-8 (Version None)
Quarter: 2004Q4

REPORT INFORMATION
  Report Type: 
  Country: None (occurrence: None)
  Receive Date: 20041006
  Receipt Date: 20040909
  Transmission Date: 20050328
  Serious: Yes (Hospitalization)
  Sender: FDA-Public Use
  Company Number: ES-GLAXOSMITHKLINE-B0345619A

PATIENT
  Age: 59 Year
  Sex: Female

DRUGS (2)
  1. LAMICTAL [Suspect]
     Indication: EPILEPSY
     Dosage: 50MG PER DAY
     Dates: start: 20040730, end: 20040814
  2. VALPROATE SODIUM [Concomitant]

REACTIONS (7)
  - ANOREXIA [None]
  - ASTHENIA [None]
  - BONE MARROW DEPRESSION [None]
  - NEUTROPENIA [None]
  - PYREXIA [None]
  - RASH PRURITIC [None]
  - VAGINAL DISORDER [None]
